FAERS Safety Report 7629787-1 (Version None)
Quarter: 2011Q3

REPORT INFORMATION
  Report Type: 
  Country: None (occurrence: None)
  Receive Date: 20110722
  Receipt Date: 20110713
  Transmission Date: 20111222
  Serious: Yes (Other)
  Sender: FDA-Public Use
  Company Number: US-ASTRAZENECA-2011SE42186

PATIENT
  Sex: Male

DRUGS (5)
  1. LISINOPRIL [Suspect]
     Route: 048
  2. AZITHROMYCIN [Concomitant]
     Dosage: TWO TABLETS ON FIRST DAY, THEN ONE EVERY DAY UNTIL GONE
     Route: 048
  3. ESTRADIOL [Concomitant]
     Route: 048
  4. METFORMIN HCL [Concomitant]
     Route: 048
  5. SYMBICORT [Suspect]
     Route: 055

REACTIONS (7)
  - NAUSEA [None]
  - PROSTATE CANCER METASTATIC [None]
  - IMPAIRED WORK ABILITY [None]
  - PAIN [None]
  - COUGH [None]
  - CHRONIC OBSTRUCTIVE PULMONARY DISEASE [None]
  - DYSPNOEA [None]
